FAERS Safety Report 4449202-9 (Version None)
Quarter: 2004Q3

REPORT INFORMATION
  Report Type: 
  Country: None (occurrence: None)
  Receive Date: 20040910
  Receipt Date: 22000901
  Transmission Date: 20050211
  Serious: Yes (Other)
  Sender: FDA-Public Use
  Company Number: 2004061107

PATIENT
  Age: 61 Year
  Sex: Female
  Weight: 42.6381 kg

DRUGS (10)
  1. NICOTROL [Suspect]
     Indication: SMOKING CESSATION THERAPY
     Dosage: DAILY, TRANSDERMAL
     Route: 062
     Dates: start: 20040801, end: 20040831
  2. NICOTROL [Suspect]
     Indication: SMOKING CESSATION THERAPY
     Dosage: CARTRIDGES DAILY, INHALATION
     Route: 055
     Dates: start: 20040801
  3. FUROSEMIDE [Concomitant]
  4. POTASSIUM (POTASSIUM) [Concomitant]
  5. TOLTERODINE TARTRATE [Concomitant]
  6. IPRATROPIUM BROMIDE [Concomitant]
  7. COMBIVENT [Concomitant]
  8. ASPIRIN [Concomitant]
  9. FLUDROCORTISONE ACETATE TAB [Concomitant]
  10. CLARITHROMYCIN [Concomitant]

REACTIONS (5)
  - BURNING SENSATION [None]
  - DRY MOUTH [None]
  - HEART RATE INCREASED [None]
  - TREATMENT NONCOMPLIANCE [None]
  - WEIGHT DECREASED [None]
